FAERS Safety Report 5320654-5 (Version None)
Quarter: 2007Q2

REPORT INFORMATION
  Report Type: 
  Country: None (occurrence: None)
  Receive Date: 20070502
  Receipt Date: 20070426
  Transmission Date: 20071010
  Serious: Yes (Hospitalization)
  Sender: FDA-Public Use
  Company Number: 155698USA

PATIENT
  Age: 39 Year
  Sex: Female

DRUGS (1)
  1. FLUOXETINE HYDROCHLORIDE [Suspect]
     Dosage: ORAL
     Route: 048
     Dates: start: 20070418, end: 20070418

REACTIONS (8)
  - AIRWAY BURNS [None]
  - APHONIA [None]
  - CAUSTIC INJURY [None]
  - FOREIGN BODY TRAUMA [None]
  - INJURY [None]
  - LUNG INJURY [None]
  - RESPIRATORY TRACT INFECTION [None]
  - VOCAL CORD DISORDER [None]
